FAERS Safety Report 10742285 (Version 1)
Quarter: 2015Q1

REPORT INFORMATION
  Report Type: Spontaneous
  Country: US (occurrence: None)
  Receive Date: 20150123
  Receipt Date: 20150123
  Transmission Date: 20150721
  Serious: Yes (Hospitalization, Disabling, Other)
  Sender: FDA-Public Use
  Company Number: None

PATIENT
  Age: 81 Year
  Sex: Male

DRUGS (2)
  1. PROLIA [Suspect]
     Active Substance: DENOSUMAB
     Indication: OSTEOPOROSIS
  2. PROLIA [Suspect]
     Active Substance: DENOSUMAB
     Indication: ARTHRALGIA

REACTIONS (16)
  - Neck pain [None]
  - Pneumonia [None]
  - Myocardial infarction [None]
  - Drug clearance decreased [None]
  - Cellulitis [None]
  - Gait disturbance [None]
  - Abasia [None]
  - Musculoskeletal pain [None]
  - Arthralgia [None]
  - Blood blister [None]
  - Malaise [None]
  - Influenza [None]
  - Blister [None]
  - Asthenia [None]
  - Fall [None]
  - Pelvic fracture [None]

NARRATIVE: CASE EVENT DATE: 20140818
